FAERS Safety Report 7399490-4 (Version None)
Quarter: 2011Q2

REPORT INFORMATION
  Report Type: 
  Country: None (occurrence: None)
  Receive Date: 20110407
  Receipt Date: 20110331
  Transmission Date: 20111010
  Serious: Yes (Life-Threatening)
  Sender: FDA-Public Use
  Company Number: PHHY2011US27203

PATIENT
  Sex: Female

DRUGS (5)
  1. VIOXX [Suspect]
  2. ZOCOR [Concomitant]
  3. UNIDENTIFIED GENERIC BLOOD PRESSURE MEDICATIONS [Suspect]
  4. LOTREL [Suspect]
     Route: 048
  5. DIOVAN [Suspect]

REACTIONS (2)
  - FEELING ABNORMAL [None]
  - OEDEMA PERIPHERAL [None]
